FAERS Safety Report 4984641-9 (Version None)
Quarter: 2006Q2

REPORT INFORMATION
  Report Type: 
  Country: None (occurrence: None)
  Receive Date: 20060427
  Receipt Date: 20050922
  Transmission Date: 20061013
  Serious: Yes (Hospitalization, Other)
  Sender: FDA-Public Use
  Company Number: US-MERCK-0509USA03334

PATIENT
  Age: 60 Year
  Sex: Female
  Weight: 70 kg

DRUGS (41)
  1. VIOXX [Suspect]
     Indication: RHEUMATOID ARTHRITIS
     Route: 048
     Dates: start: 20010625
  2. VIOXX [Suspect]
     Indication: MUSCULOSKELETAL STIFFNESS
     Route: 048
     Dates: start: 20010625
  3. SINGULAIR [Concomitant]
     Route: 048
  4. PROTONIX [Concomitant]
     Route: 048
  5. METHOTREXATE [Concomitant]
     Route: 065
     Dates: start: 20000802
  6. PROZAC [Concomitant]
     Route: 048
  7. PROZAC [Concomitant]
     Route: 048
     Dates: start: 20000327
  8. PREDNISONE [Concomitant]
     Route: 048
     Dates: start: 20010625, end: 20010709
  9. PREDNISONE [Concomitant]
     Route: 048
  10. PREDNISONE [Concomitant]
     Route: 048
     Dates: start: 20050126
  11. PREDNISONE [Concomitant]
     Route: 065
  12. HYDRODIURIL [Concomitant]
     Route: 048
     Dates: start: 19990324
  13. ROBITUSSIN-DM [Concomitant]
     Route: 048
  14. ULTRAM [Concomitant]
     Route: 048
  15. PLAQUENIL [Concomitant]
     Route: 048
  16. FOLIC ACID [Concomitant]
     Route: 048
  17. POTASSIUM CHLORIDE [Concomitant]
     Route: 048
  18. PRILOSEC [Concomitant]
     Route: 048
     Dates: start: 19990412
  19. LORTAB [Concomitant]
     Route: 048
     Dates: start: 20000504
  20. MOBIC [Concomitant]
     Route: 065
     Dates: start: 20000802
  21. DARVON [Concomitant]
     Route: 048
     Dates: start: 20010525
  22. NIZORAL 2% SHAMPOO [Concomitant]
     Route: 065
     Dates: start: 20010319
  23. RELAFEN [Concomitant]
     Route: 048
  24. CELEBREX [Concomitant]
     Route: 065
     Dates: start: 20050505
  25. BEXTRA [Concomitant]
     Route: 065
     Dates: start: 20041103, end: 20050505
  26. FLUMADINE [Concomitant]
     Route: 048
  27. PHENERGAN TABLETS/SUPPOSITORIES [Concomitant]
     Route: 065
  28. LIDOCAINE HYDROCHLORIDE [Concomitant]
     Route: 048
  29. ZELNORM [Concomitant]
     Route: 048
  30. ANUSOL SUPPOSITORIES/OINTMENT [Concomitant]
     Route: 065
  31. [THERAPY UNSPECIFIED] [Concomitant]
     Route: 048
  32. ACTONEL [Concomitant]
     Route: 048
  33. AUGMENTIN '125' [Concomitant]
     Route: 048
  34. NASONEX [Concomitant]
     Route: 055
  35. PALGIC D [Concomitant]
     Route: 065
  36. RANITIDINE [Concomitant]
     Route: 048
     Dates: start: 20051222
  37. PERCOCET [Concomitant]
     Route: 048
  38. REGLAN [Concomitant]
     Route: 048
  39. CEFTIN [Concomitant]
     Route: 048
     Dates: start: 20041005
  40. DETROL LA [Concomitant]
     Route: 048
  41. PREVACID [Concomitant]
     Route: 048

REACTIONS (48)
  - ABDOMINAL MASS [None]
  - ABDOMINAL PAIN [None]
  - ABDOMINAL PAIN UPPER [None]
  - ACCIDENT [None]
  - ACUTE SINUSITIS [None]
  - ANAEMIA [None]
  - ANGINA PECTORIS [None]
  - ANOREXIA [None]
  - ANXIETY [None]
  - APHTHOUS STOMATITIS [None]
  - ARTHRALGIA [None]
  - ASTHENIA [None]
  - BACK PAIN [None]
  - BRONCHIAL HYPERACTIVITY [None]
  - BUNION [None]
  - CARDIOMEGALY [None]
  - CEREBROVASCULAR ACCIDENT [None]
  - CHEST PAIN [None]
  - CHRONIC SINUSITIS [None]
  - DEPRESSION [None]
  - DIAPHRAGMATIC HERNIA [None]
  - DIZZINESS [None]
  - DYSGEUSIA [None]
  - DYSPHAGIA [None]
  - EMOTIONAL DISTRESS [None]
  - FIBRIN D DIMER INCREASED [None]
  - FOOT OPERATION [None]
  - GASTRIC POLYPS [None]
  - GASTROOESOPHAGEAL REFLUX DISEASE [None]
  - GENERAL SYMPTOM [None]
  - HAEMATOCRIT DECREASED [None]
  - HAEMOGLOBIN DECREASED [None]
  - HAEMORRHOIDS [None]
  - HEADACHE [None]
  - HEART RATE IRREGULAR [None]
  - HIATUS HERNIA [None]
  - HYPERTONIC BLADDER [None]
  - HYPOKALAEMIA [None]
  - HYPOXIA [None]
  - LIMB OPERATION [None]
  - LIMB TRAUMATIC AMPUTATION [None]
  - NAUSEA [None]
  - PALPITATIONS [None]
  - PRURITUS [None]
  - RHINITIS ALLERGIC [None]
  - URINARY TRACT INFECTION [None]
  - VISUAL DISTURBANCE [None]
  - WEIGHT DECREASED [None]
